FAERS Safety Report 7089066-0 (Version None)
Quarter: 2010Q4

REPORT INFORMATION
  Report Type: 
  Country: None (occurrence: None)
  Receive Date: 20101108
  Receipt Date: 20101029
  Transmission Date: 20110411
  Serious: Yes (Other)
  Sender: FDA-Public Use
  Company Number: B0681564A

PATIENT
  Sex: Female

DRUGS (4)
  1. ZOVIRAX [Suspect]
     Indication: ENCEPHALITIS HERPES
     Route: 042
     Dates: start: 20101025
  2. CALCIUM CARBONATE [Concomitant]
     Route: 048
     Dates: start: 20101025
  3. TAKEPRON [Concomitant]
     Dates: start: 20101025
  4. SODIUM SULBACTAM + SODIUM AMPICILLIN [Concomitant]
     Dates: start: 20101025

REACTIONS (1)
  - DEPRESSED LEVEL OF CONSCIOUSNESS [None]
